FAERS Safety Report 22540112 (Version 3)
Quarter: 2023Q2

REPORT INFORMATION
  Report Type: Report from Study
  Country: EG (occurrence: EG)
  Receive Date: 20230609
  Receipt Date: 20230627
  Transmission Date: 20230722
  Serious: Yes (Other)
  Sender: FDA-Public Use
  Company Number: EG-002147023-NVSC2023EG100258

PATIENT
  Age: 35 Year
  Sex: Male

DRUGS (5)
  1. COSENTYX [Suspect]
     Active Substance: SECUKINUMAB
     Indication: Ankylosing spondylitis
     Dosage: 150 MG, Q2W (EVERY 2 WEEKS)
     Route: 058
  2. COSENTYX [Suspect]
     Active Substance: SECUKINUMAB
     Dosage: 150 MG, QW (5 PENS FOR 5 WEEKS, FOLLOWED BY 1 PREFILLED PEN EVERY 2 WEEKS FOR 1 MONTH AS OFF-LABEL M
     Route: 058
     Dates: start: 20230420
  3. SULFASALAZINE [Suspect]
     Active Substance: SULFASALAZINE
     Indication: Product used for unknown indication
     Dosage: 4 DOSAGE FORM, QD (1-4 DOSAGE FORM)
     Route: 065
     Dates: start: 20230428
  4. SULFASALAZINE [Suspect]
     Active Substance: SULFASALAZINE
     Dosage: 3 DOSAGE FORM, QD
     Route: 065
  5. MOBIC [Concomitant]
     Active Substance: MELOXICAM
     Indication: Analgesic therapy
     Dosage: UNK
     Route: 065
     Dates: start: 20230323, end: 202305

REACTIONS (12)
  - Abdominal pain upper [Not Recovered/Not Resolved]
  - Sleep disorder [Not Recovered/Not Resolved]
  - Ankylosing spondylitis [Unknown]
  - Malaise [Unknown]
  - Mucous stools [Not Recovered/Not Resolved]
  - Movement disorder [Unknown]
  - Illness [Unknown]
  - Joint swelling [Recovering/Resolving]
  - Arthritis [Recovering/Resolving]
  - Arthralgia [Not Recovered/Not Resolved]
  - Off label use [Unknown]
  - Drug ineffective [Not Recovered/Not Resolved]

NARRATIVE: CASE EVENT DATE: 20230410
